FAERS Safety Report 4784857-0 (Version None)
Quarter: 2005Q3

REPORT INFORMATION
  Report Type: 
  Country: None (occurrence: None)
  Receive Date: 20050928
  Receipt Date: 20050913
  Transmission Date: 20060218
  Serious: Yes (Other)
  Sender: FDA-Public Use
  Company Number: USA0506100314

PATIENT
  Age: 78 Year
  Sex: Female
  Weight: 53 kg

DRUGS (5)
  1. FORTEO [Suspect]
     Indication: OSTEOPOROSIS
     Dosage: 20 UG/1 DAY
     Dates: start: 20041201
  2. RANITIDINE [Concomitant]
  3. MOBIC [Concomitant]
  4. NASONEX [Concomitant]
  5. DILTIAZEM [Concomitant]

REACTIONS (19)
  - AMNESIA [None]
  - ARRHYTHMIA [None]
  - ASTHENIA [None]
  - ATRIAL FIBRILLATION [None]
  - ATRIAL FLUTTER [None]
  - BLOOD PRESSURE SYSTOLIC INCREASED [None]
  - BONE PAIN [None]
  - DIASTOLIC DYSFUNCTION [None]
  - DISEASE RECURRENCE [None]
  - FATIGUE [None]
  - HEART RATE INCREASED [None]
  - HEART SOUNDS ABNORMAL [None]
  - HYPERTENSION [None]
  - INFARCTION [None]
  - MITRAL VALVE INCOMPETENCE [None]
  - MITRAL VALVE PROLAPSE [None]
  - PAIN IN EXTREMITY [None]
  - PHARMACEUTICAL PRODUCT COMPLAINT [None]
  - PULMONARY HYPERTENSION [None]
